FAERS Safety Report 25396191 (Version 1)
Quarter: 2025Q2

REPORT INFORMATION
  Report Type: Spontaneous
  Country: GB (occurrence: GB)
  Receive Date: 20250604
  Receipt Date: 20250604
  Transmission Date: 20250717
  Serious: Yes (Other)
  Sender: GLAXOSMITHKLINE
  Company Number: None

PATIENT

DRUGS (4)
  1. LAMOTRIGINE [Suspect]
     Active Substance: LAMOTRIGINE
     Indication: Product used for unknown indication
     Dosage: 1 DF, QOD, ONE TO BE TAKEN ON ALTERNATE DAYS FOR 2 WEEKS
     Route: 065
     Dates: start: 20250408, end: 20250417
  2. LAMOTRIGINE [Concomitant]
     Active Substance: LAMOTRIGINE
     Indication: Product used for unknown indication
     Dosage: 1 DF, QOD, ONE TO BE TAKEN ON ALTERNATE DAYS FOR 2 WEEKS
     Route: 065
     Dates: start: 20250205, end: 20250321
  3. LAMOTRIGINE [Concomitant]
     Active Substance: LAMOTRIGINE
     Dosage: 1 DF, QOD, ONE TO BE TAKEN ON ALTERNATE DAYS FOR 2 WEEKS
     Route: 065
     Dates: start: 20250408, end: 20250417
  4. EPILIM [Concomitant]
     Active Substance: VALPROATE SODIUM
     Indication: Product used for unknown indication
     Dosage: 1 DF, QD, ONE DAILY (WITH 2X500MG TABLETS 1300MG) FOR 2 WEEKS
     Route: 065
     Dates: start: 20250327

REACTIONS (2)
  - Joint swelling [Recovering/Resolving]
  - Tremor [Recovering/Resolving]

NARRATIVE: CASE EVENT DATE: 20250401
